FAERS Safety Report 21831017 (Version 3)
Quarter: 2024Q1

REPORT INFORMATION
  Report Type: Spontaneous
  Country: US (occurrence: US)
  Receive Date: 20230106
  Receipt Date: 20240318
  Transmission Date: 20240409
  Serious: Yes (Hospitalization, Other)
  Sender: FDA-Public Use
  Company Number: US-PFIZER INC-2021031028

PATIENT
  Age: 85 Year
  Sex: Female
  Weight: 61.69 kg

DRUGS (9)
  1. VYNDAMAX [Suspect]
     Active Substance: TAFAMIDIS
     Indication: Cardiomyopathy
     Dosage: 61 MG, 1X/DAY (61MG CAPSULE BY MOUTH ONCE A DAY IN THE MORNING)
     Route: 048
     Dates: start: 2020
  2. VYNDAMAX [Suspect]
     Active Substance: TAFAMIDIS
     Indication: Amyloidosis
  3. VYNDAMAX [Suspect]
     Active Substance: TAFAMIDIS
     Indication: Acquired ATTR amyloidosis
  4. VYNDAMAX [Suspect]
     Active Substance: TAFAMIDIS
     Indication: Cardiac amyloidosis
  5. LASIX [Concomitant]
     Active Substance: FUROSEMIDE
     Indication: Anticoagulant therapy
     Dosage: UNK
  6. METOPROLOL [Concomitant]
     Active Substance: METOPROLOL
     Indication: Blood pressure abnormal
     Dosage: 50 MG, 2X/DAY
  7. METOPROLOL [Concomitant]
     Active Substance: METOPROLOL
     Indication: Illness
  8. SPIRONOLACTONE [Concomitant]
     Active Substance: SPIRONOLACTONE
     Indication: Diuretic therapy
     Dosage: 25 MG, 2X/DAY
     Route: 048
  9. ELIQUIS [Concomitant]
     Active Substance: APIXABAN
     Dosage: 2.5 MG, 2X/DAY

REACTIONS (6)
  - Fall [Unknown]
  - Limb operation [Unknown]
  - Lower limb fracture [Unknown]
  - Femur fracture [Unknown]
  - Product dose omission issue [Unknown]
  - Body height decreased [Unknown]

NARRATIVE: CASE EVENT DATE: 20200101
